FAERS Safety Report 19478904 (Version 1)
Quarter: 2021Q2

REPORT INFORMATION
  Report Type: Spontaneous
  Country: CN (occurrence: CN)
  Receive Date: 20210630
  Receipt Date: 20210630
  Transmission Date: 20210717
  Serious: Yes (Life-Threatening, Hospitalization)
  Sender: FDA-Public Use
  Company Number: CN-NOVOPROD-823251

PATIENT
  Age: 62 Year
  Sex: Male
  Weight: 70 kg

DRUGS (4)
  1. INSULIN GLARGINE [Suspect]
     Active Substance: INSULIN GLARGINE
     Dosage: 8 IU, QD(BEFORE SLEEPING)
     Route: 058
  2. NOVORAPID [Suspect]
     Active Substance: INSULIN ASPART
     Indication: DIABETES MELLITUS
     Dosage: 10 IU, BID(10 U?8 U,BEFORE BREAKFAST AND SUPPER)
     Route: 058
     Dates: start: 20210515
  3. INSULIN GLARGINE [Suspect]
     Active Substance: INSULIN GLARGINE
     Indication: DIABETES MELLITUS
     Dosage: 10 IU, QD(BEFORE SLEEPING)
     Route: 058
     Dates: start: 20210515
  4. NOVORAPID [Suspect]
     Active Substance: INSULIN ASPART
     Dosage: 6 U BEFORE THREE MEALS
     Route: 058

REACTIONS (2)
  - Vomiting [Recovering/Resolving]
  - Hypoglycaemic coma [Recovering/Resolving]

NARRATIVE: CASE EVENT DATE: 20210615
